FAERS Safety Report 9835553 (Version 2)
Quarter: 2014Q3

REPORT INFORMATION
  Report Type: Spontaneous
  Country: US (occurrence: US)
  Receive Date: 20140122
  Receipt Date: 20140806
  Transmission Date: 20150326
  Serious: Yes (Hospitalization, Other)
  Sender: FDA-Public Use
  Company Number: US-009507513-1401USA009914

PATIENT
  Sex: Female

DRUGS (2)
  1. NUVARING [Suspect]
     Active Substance: ETHINYL ESTRADIOL\ETONOGESTREL
     Indication: CONTRACEPTION
     Dosage: UNK
     Route: 067
     Dates: start: 20061206
  2. TOPAMAX [Concomitant]
     Active Substance: TOPIRAMATE
     Dosage: 150 MG, BID

REACTIONS (9)
  - Ovarian cyst [Unknown]
  - Deep vein thrombosis [Unknown]
  - Anxiety [Unknown]
  - Atelectasis [Unknown]
  - Antiphospholipid antibodies positive [Unknown]
  - Migraine [Unknown]
  - Pulmonary embolism [Unknown]
  - Pleural effusion [Unknown]
  - Thyroid neoplasm [Unknown]

NARRATIVE: CASE EVENT DATE: 20070209
